FAERS Safety Report 16499922 (Version 1)
Quarter: 2019Q3

REPORT INFORMATION
  Report Type: Spontaneous
  Country: NL (occurrence: NL)
  Receive Date: 20190701
  Receipt Date: 20190701
  Transmission Date: 20191004
  Serious: Yes (Other)
  Sender: FDA-Public Use
  Company Number: NL-TEVA-2019-NL-1070876

PATIENT
  Sex: Female
  Weight: 84 kg

DRUGS (2)
  1. LOSARTANKALIUM ACCORD 100 MG [Concomitant]
     Dosage: 100 MILLIGRAM DAILY; 1 X DAY 1 TABLET
  2. METOP METOPROLOLTARTRAAT [Suspect]
     Active Substance: METOPROLOL TARTRATE
     Indication: HYPERTENSION
     Dosage: 2 X PER DAY 1 TABLET
     Dates: start: 2006

REACTIONS (1)
  - Neuropathy peripheral [Recovered/Resolved with Sequelae]
